FAERS Safety Report 10346797 (Version 3)
Quarter: 2014Q3

REPORT INFORMATION
  Report Type: Spontaneous
  Country: GB (occurrence: GB)
  Receive Date: 20140729
  Receipt Date: 20140929
  Transmission Date: 20150326
  Serious: Yes (Other)
  Sender: FDA-Public Use
  Company Number: GB-ROCHE-1439692

PATIENT
  Age: 46 Year
  Sex: Female
  Weight: 99.8 kg

DRUGS (2)
  1. HERCEPTIN [Suspect]
     Active Substance: TRASTUZUMAB
     Indication: BREAST CANCER
     Route: 058
  2. HERCEPTIN [Suspect]
     Active Substance: TRASTUZUMAB
     Indication: BREAST CANCER
     Route: 042

REACTIONS (2)
  - Injection site pain [Not Recovered/Not Resolved]
  - Injection site vesicles [Recovered/Resolved]

NARRATIVE: CASE EVENT DATE: 20140701
